FAERS Safety Report 24675147 (Version 1)
Quarter: 2024Q4

REPORT INFORMATION
  Report Type: Report from Study
  Country: US (occurrence: US)
  Receive Date: 20241128
  Receipt Date: 20241128
  Transmission Date: 20250115
  Serious: Yes (Other)
  Sender: GILEAD
  Company Number: US-GILEAD-2024-0695263

PATIENT
  Sex: Female

DRUGS (1)
  1. AZTREONAM LYSINE [Suspect]
     Active Substance: AZTREONAM LYSINE
     Indication: Product used for unknown indication
     Dosage: 75 MG, TID
     Route: 055
     Dates: start: 202405

REACTIONS (7)
  - Thrombosis [Unknown]
  - Pneumonia [Recovered/Resolved]
  - Haemorrhage [Unknown]
  - Oral pain [Unknown]
  - Faeces discoloured [Not Recovered/Not Resolved]
  - Myalgia [Unknown]
  - Contusion [Unknown]
